FAERS Safety Report 23394326 (Version 1)
Quarter: 2024Q1

REPORT INFORMATION
  Report Type: Spontaneous
  Country: CN (occurrence: CN)
  Receive Date: 20240111
  Receipt Date: 20240111
  Transmission Date: 20240410
  Serious: Yes (Hospitalization)
  Sender: FDA-Public Use
  Company Number: CN-ELI_LILLY_AND_COMPANY-CN202401003707

PATIENT
  Age: 50 Year
  Sex: Male

DRUGS (4)
  1. ABEMACICLIB [Suspect]
     Active Substance: ABEMACICLIB
     Indication: Breast cancer
     Dosage: 150 MG, BID
     Route: 048
     Dates: start: 20231124, end: 20231201
  2. ABEMACICLIB [Suspect]
     Active Substance: ABEMACICLIB
     Indication: Transaminases
  3. ABEMACICLIB [Suspect]
     Active Substance: ABEMACICLIB
     Indication: Insomnia
  4. ABEMACICLIB [Suspect]
     Active Substance: ABEMACICLIB
     Indication: Thyroid mass

REACTIONS (1)
  - Myelosuppression [Unknown]

NARRATIVE: CASE EVENT DATE: 20231128
